FAERS Safety Report 20702232 (Version 1)
Quarter: 2022Q2

REPORT INFORMATION
  Report Type: Report from Study
  Country: GB (occurrence: IT)
  Receive Date: 20220412
  Receipt Date: 20220412
  Transmission Date: 20220721
  Serious: Yes (Other)
  Sender: FDA-Public Use
  Company Number: IT-ACRAF SpA-2022-027211

PATIENT

DRUGS (1)
  1. LATUDA [Suspect]
     Active Substance: LURASIDONE HYDROCHLORIDE
     Indication: Schizophrenia
     Dosage: STARTED PROBABLY 3 YEARS AGO (74 MG)
     Route: 065

REACTIONS (5)
  - Delirium [Unknown]
  - Drug ineffective [Unknown]
  - Anger [Unknown]
  - Aggression [Unknown]
  - Inappropriate schedule of product administration [Unknown]
